FAERS Safety Report 25080171 (Version 1)
Quarter: 2025Q1

REPORT INFORMATION
  Report Type: Spontaneous
  Country: JP (occurrence: JP)
  Receive Date: 20250314
  Receipt Date: 20250314
  Transmission Date: 20250408
  Serious: Yes (Death)
  Sender: EISAI
  Company Number: JP-Eisai-202416346_LEN_P_1

PATIENT
  Age: 46 Year
  Sex: Female

DRUGS (2)
  1. LENVIMA [Suspect]
     Active Substance: LENVATINIB
     Indication: Anaplastic thyroid cancer
     Dosage: ON A 6-DAY-ON AND 1-DAY-OFF SCHEDULE
     Dates: start: 20250220
  2. LENVIMA [Suspect]
     Active Substance: LENVATINIB

REACTIONS (1)
  - Haemorrhage [Fatal]

NARRATIVE: CASE EVENT DATE: 20250101
